FAERS Safety Report 4658630-8 (Version None)
Quarter: 2005Q2

REPORT INFORMATION
  Report Type: 
  Country: None (occurrence: None)
  Receive Date: 20050511
  Receipt Date: 20050429
  Transmission Date: 20051028
  Serious: Yes (Hospitalization)
  Sender: FDA-Public Use
  Company Number: FR-GLAXOSMITHKLINE-B0379784A

PATIENT
  Age: 64 Year
  Sex: Female
  Weight: 84 kg

DRUGS (8)
  1. FRAXIPARINE [Suspect]
     Dosage: .4ML PER DAY
     Route: 058
  2. SEREVENT [Suspect]
     Indication: ILL-DEFINED DISORDER
     Dosage: 2PUFF PER DAY
     Route: 055
  3. TAVANIC [Suspect]
     Dosage: 500MG PER DAY
     Route: 048
     Dates: start: 20050401, end: 20050408
  4. MOPRAL [Suspect]
     Dosage: 20MG PER DAY
     Route: 048
  5. ALDACTAZINE [Suspect]
     Indication: ESSENTIAL HYPERTENSION
     Dosage: 1TAB PER DAY
     Route: 048
  6. RIFADIN [Suspect]
     Dosage: 300MG FOUR TIMES PER DAY
     Route: 048
  7. DAFLON [Concomitant]
     Dosage: 1UNIT UNKNOWN
  8. DIAMICRON [Concomitant]
     Dosage: 1UNIT PER DAY

REACTIONS (5)
  - APHASIA [None]
  - COMMUNICATION DISORDER [None]
  - EPILEPSY [None]
  - FACIAL PALSY [None]
  - SOMNOLENCE [None]
